FAERS Safety Report 6861804-9 (Version None)
Quarter: 2010Q3

REPORT INFORMATION
  Report Type: 
  Country: None (occurrence: None)
  Receive Date: 20100721
  Receipt Date: 20100712
  Transmission Date: 20110219
  Serious: No
  Sender: FDA-Public Use
  Company Number: US-BIOGENIDEC-2010BI024256

PATIENT
  Age: 47 Year
  Sex: Female

DRUGS (2)
  1. TYSABRI [Suspect]
     Indication: MULTIPLE SCLEROSIS
     Route: 042
     Dates: start: 20070618, end: 20091223
  2. TYSABRI [Suspect]
     Route: 042
     Dates: start: 20100201

REACTIONS (2)
  - HEMIPARESIS [None]
  - LOSS OF CONSCIOUSNESS [None]
